FAERS Safety Report 9781503 (Version 1)
Quarter: 2013Q4

REPORT INFORMATION
  Report Type: Spontaneous
  Country: US (occurrence: US)
  Receive Date: 20131224
  Receipt Date: 20131224
  Transmission Date: 20140711
  Serious: No
  Sender: FDA-Public Use
  Company Number: US-BIOGENIDEC-2013BI122434

PATIENT
  Sex: Female

DRUGS (11)
  1. TECFIDERA [Suspect]
     Indication: MULTIPLE SCLEROSIS
     Route: 048
  2. TECFIDERA [Suspect]
     Indication: MULTIPLE SCLEROSIS
     Route: 048
     Dates: start: 201309
  3. ADVAIR [Concomitant]
  4. AMITRIPTYLINE HCL [Concomitant]
  5. BUSPIRONE HCL [Concomitant]
  6. IMODIUM A-D [Concomitant]
  7. METAMUCIL [Concomitant]
  8. RANTIDINE HCL [Concomitant]
  9. TUDORZA PRESSAIR [Concomitant]
  10. TYLENOL [Concomitant]
  11. VITAMIN D [Concomitant]

REACTIONS (2)
  - Sensory loss [Unknown]
  - Ageusia [Unknown]
